FAERS Safety Report 4391439-1 (Version None)
Quarter: 2004Q3

REPORT INFORMATION
  Report Type: 
  Country: None (occurrence: None)
  Receive Date: 20040707
  Receipt Date: 20040518
  Transmission Date: 20050211
  Serious: Yes (Other)
  Sender: FDA-Public Use
  Company Number: JP-GLAXOSMITHKLINE-B0333528A

PATIENT
  Age: 31 Year
  Sex: Male

DRUGS (9)
  1. PAXIL [Suspect]
     Indication: ANXIETY
     Route: 048
     Dates: start: 20001215
  2. DOGMATYL [Suspect]
     Indication: DEPRESSION
     Route: 048
     Dates: start: 19990416
  3. SEPAZON [Suspect]
     Indication: DEPRESSION
     Route: 048
     Dates: start: 19990403
  4. CLOMIPRAMINE HCL [Concomitant]
     Dosage: 20MG PER DAY
     Route: 065
  5. SULPIRIDE [Concomitant]
     Route: 065
  6. CLOXAZOLAM [Concomitant]
     Dosage: 4MG PER DAY
     Route: 048
  7. LITHIUM CARBONATE [Concomitant]
     Dosage: 200MG PER DAY
     Route: 048
  8. LUVOX [Concomitant]
     Indication: DEPRESSION
     Dosage: 100MG PER DAY
     Route: 048
     Dates: start: 19990604, end: 20001214
  9. ANAFRANIL [Concomitant]
     Indication: DEPRESSION
     Route: 048
     Dates: start: 19990416, end: 19990604

REACTIONS (3)
  - AGGRESSION [None]
  - IMPULSIVE BEHAVIOUR [None]
  - IRRITABILITY [None]
